FAERS Safety Report 15427291 (Version 1)
Quarter: 2018Q3

REPORT INFORMATION
  Report Type: Spontaneous
  Country: US (occurrence: US)
  Receive Date: 20180925
  Receipt Date: 20180925
  Transmission Date: 20181010
  Serious: Yes (Other)
  Sender: FDA-Public Use
  Company Number: US-GE HEALTHCARE LIFE SCIENCES-2018CSU003771

PATIENT
  Sex: Male
  Weight: 68 kg

DRUGS (1)
  1. OMNIPAQUE [Suspect]
     Active Substance: IOHEXOL
     Indication: PAIN IN EXTREMITY
     Dosage: 125 ML, SINGLE
     Route: 042
     Dates: start: 20180730, end: 20180730

REACTIONS (3)
  - Lacrimation increased [Unknown]
  - Urticaria [Unknown]
  - Swelling face [Unknown]
